FAERS Safety Report 8401931-8 (Version None)
Quarter: 2012Q2

REPORT INFORMATION
  Report Type: 
  Country: None (occurrence: None)
  Receive Date: 20120601
  Receipt Date: 20120525
  Transmission Date: 20120825
  Serious: Yes (Other)
  Sender: FDA-Public Use
  Company Number: GB-PFIZER INC-2011242324

PATIENT
  Age: 38 Year
  Sex: Male

DRUGS (1)
  1. VARENICLINE TARTRATE [Suspect]
     Indication: SMOKING CESSATION THERAPY
     Dosage: 500 UG, 2X/DAY
     Route: 048
     Dates: start: 20110705, end: 20110817

REACTIONS (2)
  - GRAND MAL CONVULSION [None]
  - DRUG WITHDRAWAL SYNDROME [None]
